FAERS Safety Report 5146191-9 (Version None)
Quarter: 2006Q4

REPORT INFORMATION
  Report Type: 
  Country: None (occurrence: None)
  Receive Date: 20061106
  Receipt Date: 20061106
  Transmission Date: 20070319
  Serious: Yes (Hospitalization)
  Sender: FDA-Public Use
  Company Number: None

PATIENT
  Age: 16 Year
  Sex: Female
  Weight: 79 kg

DRUGS (18)
  1. THALOMID [Suspect]
     Indication: GLIOBLASTOMA
     Dosage: 500 MG DAILY PO
     Route: 048
     Dates: start: 20060821, end: 20061031
  2. CELEBREX [Suspect]
     Indication: GLIOBLASTOMA
     Dosage: 400 MG TWICE A DAY PO
     Route: 048
     Dates: start: 20060821, end: 20061031
  3. FENOFIBRATE [Concomitant]
  4. ETOPOSIDE [Concomitant]
  5. CYCLOPHOSPHAMIDE [Concomitant]
  6. ASPIRIN [Concomitant]
  7. CETIRIZINE HCL [Concomitant]
  8. CYPROHEPTADINE HCL [Concomitant]
  9. DEXAMETHASONE TAB [Concomitant]
  10. TAPER [Concomitant]
  11. DIAZEPAM [Concomitant]
  12. FLUCONAZOLE [Concomitant]
  13. FLUORIDE [Concomitant]
  14. LEVETIRACETAM [Concomitant]
  15. LEVOTHYROXINE SODIUM [Concomitant]
  16. ONDANSETRON [Concomitant]
  17. POLYETHYLENE GLYCOL [Concomitant]
  18. RANITIDINE [Concomitant]

REACTIONS (2)
  - PULMONARY EMBOLISM [None]
  - THROMBOSIS [None]
